FAERS Safety Report 16378254 (Version 1)
Quarter: 2019Q2

REPORT INFORMATION
  Report Type: Spontaneous
  Country: US (occurrence: US)
  Receive Date: 20190425
  Receipt Date: 20190425
  Transmission Date: 20190711
  Serious: Yes (Other)
  Sender: FDA-Public Use
  Company Number: None

PATIENT
  Age: 57 Year
  Sex: Female

DRUGS (10)
  1. BUMEX [Suspect]
     Active Substance: BUMETANIDE
  2. TADALAFIL. [Concomitant]
     Active Substance: TADALAFIL
  3. OSTRADIOL VAG CR [Concomitant]
  4. FLOLAN [Concomitant]
     Active Substance: EPOPROSTENOL SODIUM
  5. OMEPRAZOLE. [Concomitant]
     Active Substance: OMEPRAZOLE
  6. EARFARIN [Concomitant]
  7. FERROUS SULFATE. [Concomitant]
     Active Substance: FERROUS SULFATE
  8. LETAIRIS [Suspect]
     Active Substance: AMBRISENTAN
     Indication: HEART DISEASE CONGENITAL
     Route: 048
     Dates: start: 201803
  9. SPIRONOLACTONE. [Concomitant]
     Active Substance: SPIRONOLACTONE
  10. KLOR-CON [Concomitant]
     Active Substance: POTASSIUM CHLORIDE

REACTIONS (5)
  - Cough [None]
  - Nasal congestion [None]
  - Rhinorrhoea [None]
  - Wheezing [None]
  - Crepitations [None]

NARRATIVE: CASE EVENT DATE: 20190407
